FAERS Safety Report 12194653 (Version 1)
Quarter: 2016Q1

REPORT INFORMATION
  Report Type: Spontaneous
  Country: US (occurrence: US)
  Receive Date: 20160321
  Receipt Date: 20160321
  Transmission Date: 20160526
  Serious: Yes (Other)
  Sender: FDA-Public Use
  Company Number: US-ROCHE-1727708

PATIENT

DRUGS (12)
  1. CLONAZEPAM. [Suspect]
     Active Substance: CLONAZEPAM
     Indication: PRODUCT USED FOR UNKNOWN INDICATION
     Route: 063
  2. SERTRALINE [Suspect]
     Active Substance: SERTRALINE HYDROCHLORIDE
     Indication: PRODUCT USED FOR UNKNOWN INDICATION
     Route: 063
  3. OLANZAPINE. [Suspect]
     Active Substance: OLANZAPINE
     Route: 064
  4. THIORIDAZINE [Suspect]
     Active Substance: THIORIDAZINE
     Route: 064
  5. DROPERIDOL. [Suspect]
     Active Substance: DROPERIDOL
     Route: 064
  6. DROPERIDOL. [Suspect]
     Active Substance: DROPERIDOL
     Indication: PRODUCT USED FOR UNKNOWN INDICATION
     Route: 063
  7. VALPROATE [Suspect]
     Active Substance: VALPROATE SODIUM
     Indication: PRODUCT USED FOR UNKNOWN INDICATION
     Route: 063
  8. VALPROATE [Suspect]
     Active Substance: VALPROATE SODIUM
     Route: 064
  9. OLANZAPINE. [Suspect]
     Active Substance: OLANZAPINE
     Indication: PRODUCT USED FOR UNKNOWN INDICATION
     Route: 063
  10. THIORIDAZINE [Suspect]
     Active Substance: THIORIDAZINE
     Indication: PRODUCT USED FOR UNKNOWN INDICATION
     Route: 063
  11. CLONAZEPAM. [Suspect]
     Active Substance: CLONAZEPAM
     Route: 064
  12. SERTRALINE [Suspect]
     Active Substance: SERTRALINE HYDROCHLORIDE
     Route: 064

REACTIONS (3)
  - Exposure during breast feeding [Unknown]
  - Developmental delay [Unknown]
  - Foetal exposure during pregnancy [Unknown]
